FAERS Safety Report 20515454 (Version 1)
Quarter: 2022Q1

REPORT INFORMATION
  Report Type: Spontaneous
  Country: US (occurrence: US)
  Receive Date: 20220224
  Receipt Date: 20220224
  Transmission Date: 20220424
  Serious: No
  Sender: FDA-Public Use
  Company Number: US-LANTHEUS-LMI-2021-00252

PATIENT
  Age: 25 Year
  Sex: Female
  Weight: 96 kg

DRUGS (1)
  1. DEFINITY [Suspect]
     Active Substance: PERFLUTREN
     Indication: Echocardiogram
     Dosage: 2 ML (DETAILS OF DILUTION WERE NOT PROVIDED)
     Route: 042
     Dates: start: 20210407, end: 20210407

REACTIONS (8)
  - Panic reaction [Recovered/Resolved]
  - Crying [Recovered/Resolved]
  - Product after taste [Recovered/Resolved]
  - Dyspnoea [Recovered/Resolved]
  - Chest pain [Recovered/Resolved]
  - Nausea [Recovered/Resolved]
  - Abdominal pain upper [Recovered/Resolved]
  - Blood pressure increased [Recovered/Resolved]

NARRATIVE: CASE EVENT DATE: 20210407
